FAERS Safety Report 14186953 (Version 2)
Quarter: 2017Q4

REPORT INFORMATION
  Report Type: Spontaneous
  Country: US (occurrence: US)
  Receive Date: 20171114
  Receipt Date: 20171130
  Transmission Date: 20180321
  Serious: No
  Sender: FDA-Public Use
  Company Number: US-PFIZER INC-2017486622

PATIENT
  Age: 50 Year
  Sex: Female

DRUGS (3)
  1. LYRICA [Suspect]
     Active Substance: PREGABALIN
     Indication: FIBROMYALGIA
     Dosage: UNK
     Dates: start: 2007
  2. LYRICA [Suspect]
     Active Substance: PREGABALIN
     Dosage: 100 MG, ONCE A DAY
  3. LYRICA [Suspect]
     Active Substance: PREGABALIN
     Dosage: 75 MG, TWICE A DAY
     Route: 048
     Dates: start: 20171107

REACTIONS (7)
  - Pain in extremity [Unknown]
  - Expired product administered [Unknown]
  - Somnolence [Not Recovered/Not Resolved]
  - Product use issue [Unknown]
  - Tenderness [Unknown]
  - Blood urine present [Unknown]
  - Renal disorder [Unknown]

NARRATIVE: CASE EVENT DATE: 2007
